FAERS Safety Report 17250552 (Version 5)
Quarter: 2020Q2

REPORT INFORMATION
  Report Type: Spontaneous
  Country: US (occurrence: US)
  Receive Date: 20200109
  Receipt Date: 20200505
  Transmission Date: 20200713
  Serious: Yes (Other)
  Sender: FDA-Public Use
  Company Number: US-AMGEN-USASP2020002241

PATIENT
  Age: 59 Year
  Sex: Female
  Weight: 113.38 kg

DRUGS (9)
  1. ENBREL [Suspect]
     Active Substance: ETANERCEPT
     Indication: TENDONITIS
     Dosage: UNK, CYCLIC (ONCE EVERY 2 WEEKS)
     Route: 065
     Dates: start: 2013, end: 2016
  2. LEFLUNOMIDE. [Concomitant]
     Active Substance: LEFLUNOMIDE
     Dosage: UNK
     Route: 065
     Dates: start: 2011, end: 2018
  3. REMICADE [Suspect]
     Active Substance: INFLIXIMAB
     Indication: TENDON RUPTURE
     Dosage: UNK, EVERY 6 WEEKS
     Route: 065
     Dates: start: 201002, end: 201008
  4. HUMIRA [Suspect]
     Active Substance: ADALIMUMAB
     Indication: TENDONITIS
     Dosage: UNK, WEEKLY
     Route: 058
     Dates: start: 201009, end: 2013
  5. REMICADE [Suspect]
     Active Substance: INFLIXIMAB
     Indication: ARTHRITIS
  6. SIMPONI [Suspect]
     Active Substance: GOLIMUMAB
     Indication: ARTHRITIS
  7. ENBREL [Suspect]
     Active Substance: ETANERCEPT
     Indication: ARTHRITIS
  8. SIMPONI [Suspect]
     Active Substance: GOLIMUMAB
     Indication: TENDONITIS
     Dosage: UNK, ONCE EVERY 4 WEEKS
     Route: 065
     Dates: start: 2017, end: 2019
  9. HUMIRA [Suspect]
     Active Substance: ADALIMUMAB
     Indication: ARTHRITIS

REACTIONS (4)
  - Product use in unapproved indication [Unknown]
  - Infection [Recovered/Resolved]
  - Therapeutic product effect decreased [Unknown]
  - Off label use [Unknown]

NARRATIVE: CASE EVENT DATE: 2013
